FAERS Safety Report 9606737 (Version 2)
Quarter: 2013Q4

REPORT INFORMATION
  Report Type: Spontaneous
  Country: US (occurrence: US)
  Receive Date: 20131008
  Receipt Date: 20131008
  Transmission Date: 20140711
  Serious: No
  Sender: FDA-Public Use
  Company Number: US-AMGEN-USASP2013064036

PATIENT
  Age: 65 Year
  Sex: Female
  Weight: 76.19 kg

DRUGS (3)
  1. PROLIA [Suspect]
     Indication: OSTEOPOROSIS POSTMENOPAUSAL
     Dosage: 60 MG, Q6MO
     Route: 058
     Dates: start: 20130709
  2. CRESTOR [Concomitant]
     Dosage: 5 MG, UNK
  3. VITAMINS                           /00067501/ [Concomitant]

REACTIONS (4)
  - Muscle spasms [Unknown]
  - Dyspepsia [Unknown]
  - Diarrhoea [Unknown]
  - Pain [Unknown]
